FAERS Safety Report 5697625-2 (Version None)
Quarter: 2008Q2

REPORT INFORMATION
  Report Type: 
  Country: None (occurrence: None)
  Receive Date: 20080408
  Receipt Date: 20080331
  Transmission Date: 20081010
  Serious: No
  Sender: FDA-Public Use
  Company Number: US-ROCHE-550379

PATIENT
  Sex: Female

DRUGS (2)
  1. ACCUTANE [Suspect]
     Indication: DRUG USE FOR UNKNOWN INDICATION
     Dosage: PATIENT WAS DISPENSED ISOTRETINOIN 40 MG CAPSULES ON 19 NOVEMBER 2007, 19 DECEMBER 2007 AND 18 JAN+
     Route: 065
     Dates: start: 20071119, end: 20080210
  2. CONTRACEPTIVE [Concomitant]
     Dosage: DRUG: NOVUM 777

REACTIONS (2)
  - NO ADVERSE EVENT [None]
  - PREGNANCY [None]
